FAERS Safety Report 5693593-8 (Version None)
Quarter: 2008Q2

REPORT INFORMATION
  Report Type: 
  Country: None (occurrence: None)
  Receive Date: 20080401
  Receipt Date: 20080401
  Transmission Date: 20081010
  Serious: Yes (Hospitalization)
  Sender: FDA-Public Use
  Company Number: None

PATIENT
  Age: 65 Year
  Sex: Male
  Weight: 74.39 kg

DRUGS (1)
  1. PHENYTOIN [Suspect]
     Indication: CONVULSION
     Dosage: 300 MG EVERY DAY PO
     Route: 048
     Dates: start: 20071206, end: 20080214

REACTIONS (5)
  - GAIT DISTURBANCE [None]
  - SMOKER [None]
  - THERAPEUTIC AGENT TOXICITY [None]
  - TREMOR [None]
  - VISION BLURRED [None]
